FAERS Safety Report 8389613-2 (Version None)
Quarter: 2012Q2

REPORT INFORMATION
  Report Type: 
  Country: None (occurrence: None)
  Receive Date: 20120528
  Receipt Date: 20120522
  Transmission Date: 20120825
  Serious: Yes (Death, Hospitalization)
  Sender: FDA-Public Use
  Company Number: US-ROCHE-1028308

PATIENT
  Sex: Female
  Weight: 70.37 kg

DRUGS (11)
  1. MORPHINE SULFATE [Concomitant]
     Indication: PAIN
     Dosage: 20 MG/ML
  2. PHENERGAN [Concomitant]
     Indication: NAUSEA
  3. LORAZEPAM [Concomitant]
     Dosage: AT BED TIME P.R.N
  4. XELODA [Suspect]
     Indication: BREAST CANCER METASTATIC
     Route: 048
     Dates: start: 20110103, end: 20110220
  5. BENADRYL [Concomitant]
     Indication: PRURITUS
     Dosage: PRN
  6. DEXAMETHASONE [Concomitant]
  7. DULCOLAX [Concomitant]
     Dosage: P.R.N
  8. DULCOLAX [Concomitant]
     Indication: CONSTIPATION
     Route: 048
  9. TYLENOL [Concomitant]
     Indication: PAIN
  10. SODIUM PHOSPHATES [Concomitant]
  11. TYLENOL [Concomitant]
     Indication: PYREXIA

REACTIONS (9)
  - BREAST CANCER METASTATIC [None]
  - METASTASES TO LIVER [None]
  - METASTASES TO CENTRAL NERVOUS SYSTEM [None]
  - CEREBROVASCULAR ACCIDENT [None]
  - PLEURAL EFFUSION [None]
  - TYPE 2 DIABETES MELLITUS [None]
  - ASCITES [None]
  - URINARY TRACT INFECTION [None]
  - METASTASES TO LUNG [None]
